APPROVED DRUG PRODUCT: STRATTERA
Active Ingredient: ATOMOXETINE HYDROCHLORIDE
Strength: EQ 80MG BASE
Dosage Form/Route: CAPSULE;ORAL
Application: N021411 | Product #007
Applicant: ELI LILLY AND CO
Approved: Feb 14, 2005 | RLD: Yes | RS: No | Type: DISCN